FAERS Safety Report 6431504-8 (Version None)
Quarter: 2009Q4

REPORT INFORMATION
  Report Type: 
  Country: None (occurrence: None)
  Receive Date: 20091106
  Receipt Date: 20091027
  Transmission Date: 20100525
  Serious: Yes (Hospitalization)
  Sender: FDA-Public Use
  Company Number: JP-ABBOTT-08P-087-0470368-00

PATIENT
  Sex: Male

DRUGS (7)
  1. LEUPROLIDE ACETATE DEPOT INJECTION(BLINDED) [Suspect]
     Indication: SPINAL MUSCULAR ATROPHY
     Route: 050
     Dates: start: 20071113
  2. TAP-144 SR3M (BLINDED) [Concomitant]
     Indication: SPINAL MUSCULAR ATROPHY
     Route: 058
     Dates: start: 20061122, end: 20070731
  3. LOXOPROFEN [Concomitant]
     Indication: INTERVERTEBRAL DISC PROTRUSION
     Route: 048
     Dates: start: 20061121
  4. DICLOFENAC SODIUM [Concomitant]
     Indication: INTERVERTEBRAL DISC PROTRUSION
     Route: 054
     Dates: start: 20061121
  5. BIO THREE [Concomitant]
     Indication: GASTROINTESTINAL DISORDER
     Route: 048
     Dates: start: 20070201
  6. OMEPRAZOLE [Concomitant]
     Indication: REFLUX OESOPHAGITIS
     Route: 048
     Dates: start: 20080611
  7. OPALMON [Concomitant]
     Indication: INTERVERTEBRAL DISC PROTRUSION
     Route: 048
     Dates: start: 20080619, end: 20080729

REACTIONS (1)
  - INTERVERTEBRAL DISC PROTRUSION [None]
